FAERS Safety Report 24963797 (Version 3)
Quarter: 2025Q2

REPORT INFORMATION
  Report Type: Spontaneous
  Country: US (occurrence: US)
  Receive Date: 20250213
  Receipt Date: 20250512
  Transmission Date: 20250717
  Serious: No
  Sender: AMGEN
  Company Number: US-AMGEN-USASP2025028036

PATIENT
  Age: 54 Year
  Sex: Female

DRUGS (5)
  1. OTEZLA [Suspect]
     Active Substance: APREMILAST
     Indication: Psoriatic arthropathy
     Dosage: 30 MILLIGRAM, BID
     Route: 048
     Dates: start: 20240614
  2. CELECOXIB [Concomitant]
     Active Substance: CELECOXIB
  3. COMBIPATCH [Concomitant]
     Active Substance: ESTRADIOL\NORETHINDRONE ACETATE
  4. COSENTYX [Concomitant]
     Active Substance: SECUKINUMAB
  5. VALACYCLOVIR HYDROCHLORIDE [Concomitant]
     Active Substance: VALACYCLOVIR HYDROCHLORIDE

REACTIONS (6)
  - Therapy non-responder [Unknown]
  - Pain [Unknown]
  - Loss of personal independence in daily activities [Unknown]
  - Infection [Unknown]
  - Diarrhoea [Unknown]
  - Adverse drug reaction [Unknown]
